FAERS Safety Report 24680784 (Version 1)
Quarter: 2024Q4

REPORT INFORMATION
  Report Type: Spontaneous
  Country: IT (occurrence: IT)
  Receive Date: 20241129
  Receipt Date: 20241129
  Transmission Date: 20250115
  Serious: Yes (Death, Life-Threatening)
  Sender: TEVA
  Company Number: None

PATIENT
  Age: 85 Year
  Sex: Female

DRUGS (13)
  1. BISOPROLOL FUMARATE [Interacting]
     Active Substance: BISOPROLOL FUMARATE
     Indication: Atrial fibrillation
     Dosage: 10 MG 1 TABLET 8 HOURS
     Route: 048
     Dates: start: 202401, end: 20241031
  2. POTASSIUM CHLORIDE [Concomitant]
     Active Substance: POTASSIUM CHLORIDE
     Indication: Product used for unknown indication
     Route: 065
  3. ZAROXOLYN [Concomitant]
     Active Substance: METOLAZONE
     Indication: Product used for unknown indication
     Dosage: HALF A TABLET EVERY 3 DAYS
     Route: 065
  4. DAPAGLIFLOZIN [Concomitant]
     Active Substance: DAPAGLIFLOZIN
     Indication: Product used for unknown indication
     Route: 065
  5. LANOXIN [Interacting]
     Active Substance: DIGOXIN
     Indication: Cardiac failure
     Dosage: 125 MG 1 TABLET AT 8AM MONDAY-WEDNESDAY-FRIDAY
     Route: 048
     Dates: start: 202407, end: 20241031
  6. LUVION [Concomitant]
     Indication: Product used for unknown indication
     Route: 065
  7. FOLINA [Concomitant]
     Indication: Product used for unknown indication
     Route: 065
  8. LASIX [Concomitant]
     Active Substance: FUROSEMIDE
     Indication: Product used for unknown indication
     Route: 065
  9. LORAZEPAM [Concomitant]
     Active Substance: LORAZEPAM
     Indication: Product used for unknown indication
     Dosage: HALF A TABLET PER DAY
     Route: 065
  10. PAROXETINE [Concomitant]
     Active Substance: PAROXETINE
     Indication: Product used for unknown indication
     Route: 065
  11. PANTOPRAZOLE SODIUM [Concomitant]
     Active Substance: PANTOPRAZOLE SODIUM
     Indication: Product used for unknown indication
     Route: 065
  12. NIFEREX [Concomitant]
     Indication: Product used for unknown indication
     Route: 065
  13. XARELTO [Concomitant]
     Active Substance: RIVAROXABAN
     Indication: Atrial fibrillation
     Dosage: 15 MG/DAY
     Route: 048

REACTIONS (5)
  - Toxicity to various agents [Fatal]
  - Cardiogenic shock [Fatal]
  - Atrioventricular block [Fatal]
  - Toxicity to various agents [Fatal]
  - Drug interaction [Fatal]

NARRATIVE: CASE EVENT DATE: 20241031
